FAERS Safety Report 9424190 (Version 1)
Quarter: 2013Q3

REPORT INFORMATION
  Report Type: Report from Study
  Country: ES (occurrence: ES)
  Receive Date: 20130729
  Receipt Date: 20130729
  Transmission Date: 20140515
  Serious: Yes (Life-Threatening)
  Sender: FDA-Public Use
  Company Number: ES-ROCHE-1253350

PATIENT
  Age: 50 Year
  Sex: Female
  Weight: 70 kg

DRUGS (1)
  1. TRASTUZUMAB EMTANSINE [Suspect]
     Indication: NEOPLASM MALIGNANT
     Route: 042
     Dates: end: 201306

REACTIONS (2)
  - Disease progression [Not Recovered/Not Resolved]
  - Treatment failure [Unknown]
